FAERS Safety Report 17061642 (Version 1)
Quarter: 2019Q4

REPORT INFORMATION
  Report Type: Spontaneous
  Country: JP (occurrence: JP)
  Receive Date: 20191121
  Receipt Date: 20191121
  Transmission Date: 20200122
  Serious: Yes (Hospitalization, Other)
  Sender: FDA-Public Use
  Company Number: JP-ALLERGAN-1947244US

PATIENT
  Sex: Male

DRUGS (4)
  1. SUVOREXANT. [Concomitant]
     Active Substance: SUVOREXANT
  2. ASENAPINE MALEATE - BP [Suspect]
     Active Substance: ASENAPINE MALEATE
     Dosage: 5 MG, BID
     Route: 060
  3. BROTIZOLAM [Concomitant]
     Active Substance: BROTIZOLAM
  4. ASENAPINE MALEATE - BP [Suspect]
     Active Substance: ASENAPINE MALEATE
     Indication: SCHIZOPHRENIA
     Dosage: 10 MG, QHS
     Route: 060

REACTIONS (5)
  - Somnolence [Unknown]
  - Insomnia [Unknown]
  - Hallucination, auditory [Unknown]
  - Psychomotor hyperactivity [Unknown]
  - Off label use [Unknown]
